FAERS Safety Report 11589394 (Version 2)
Quarter: 2015Q4

REPORT INFORMATION
  Report Type: Spontaneous
  Country: US (occurrence: None)
  Receive Date: 20151002
  Receipt Date: 20151013
  Transmission Date: 20160304
  Serious: No
  Sender: FDA-Public Use
  Company Number: US-MDT-ADR-2015-01887

PATIENT
  Age: 52 Year
  Sex: Female

DRUGS (2)
  1. FENTANYL INTRATHECAL (1800 MCG/ML) [Suspect]
     Active Substance: FENTANYL
     Dosage: 388.7 MCG/DAY
  2. BACLOFEN INTRATHECAL (430 MCG/ML) ` [Suspect]
     Active Substance: BACLOFEN
     Dosage: 92.85 MCG/DAY

REACTIONS (5)
  - Poor quality sleep [None]
  - Somnolence [None]
  - Fall [None]
  - Sudden onset of sleep [None]
  - Insomnia [None]
